FAERS Safety Report 17989678 (Version 1)
Quarter: 2020Q3

REPORT INFORMATION
  Report Type: Spontaneous
  Country: AF (occurrence: AF)
  Receive Date: 20200707
  Receipt Date: 20200707
  Transmission Date: 20201103
  Serious: No
  Sender: FDA-Public Use
  Company Number: None

PATIENT
  Age: 57 Year
  Sex: Male
  Weight: 45.9 kg

DRUGS (19)
  1. CALCIUM D3 [Concomitant]
     Active Substance: CALCIUM\CHOLECALCIFEROL
  2. HEPARIN SODIUM LOCK FLUSH [Concomitant]
  3. TRIAMCINOLONE ACETONIDE. [Concomitant]
     Active Substance: TRIAMCINOLONE ACETONIDE
  4. TAFINLAR [Suspect]
     Active Substance: DABRAFENIB MESYLATE
     Indication: METASTASIS
     Route: 048
     Dates: start: 20200608, end: 20200707
  5. DEXAMETHASONE. [Concomitant]
     Active Substance: DEXAMETHASONE
  6. MEKINIST [Suspect]
     Active Substance: TRAMETINIB DIMETHYL SULFOXIDE
     Indication: METASTASIS
     Route: 048
     Dates: start: 20200608, end: 20200707
  7. DIPHENHYDRAMINE?ZINC ACETATE [Concomitant]
  8. HYDROCORTISONE ACETATE. [Concomitant]
     Active Substance: HYDROCORTISONE ACETATE
  9. HYRDROMORPHONE HCL ER [Concomitant]
  10. MOVANTIK [Concomitant]
     Active Substance: NALOXEGOL OXALATE
  11. NALOXONE HCL [Concomitant]
     Active Substance: NALOXONE HYDROCHLORIDE
  12. HYRDOMORPHONE HCL PF [Concomitant]
  13. LACTULOSE. [Concomitant]
     Active Substance: LACTULOSE
  14. LORAZEPAM. [Concomitant]
     Active Substance: LORAZEPAM
  15. MAGNESIUM HYDROXIDE. [Concomitant]
     Active Substance: MAGNESIUM HYDROXIDE
  16. OMEPRAZOLE. [Concomitant]
     Active Substance: OMEPRAZOLE
  17. ONDANSETRON [Concomitant]
     Active Substance: ONDANSETRON
  18. LIDOCAINE. [Concomitant]
     Active Substance: LIDOCAINE
  19. VENTOLIN HFA [Concomitant]
     Active Substance: ALBUTEROL SULFATE

REACTIONS (1)
  - Weight decreased [None]

NARRATIVE: CASE EVENT DATE: 20200707
